FAERS Safety Report 21404619 (Version 1)
Quarter: 2022Q4

REPORT INFORMATION
  Report Type: Spontaneous
  Country: US (occurrence: US)
  Receive Date: 20221003
  Receipt Date: 20221003
  Transmission Date: 20230113
  Serious: No
  Sender: FDA-Public Use
  Company Number: US-GILEAD-2022-0600016

PATIENT
  Age: 40 Year
  Sex: Female

DRUGS (8)
  1. DESCOVY [Suspect]
     Active Substance: EMTRICITABINE\TENOFOVIR ALAFENAMIDE FUMARATE
     Indication: Injury associated with device
     Dosage: 25 MG
     Route: 065
     Dates: start: 20220915
  2. TIVICAY [Suspect]
     Active Substance: DOLUTEGRAVIR SODIUM
     Indication: Needle issue
     Dosage: 50 MG
     Route: 065
     Dates: start: 20220915
  3. KLONOPIN [Concomitant]
     Active Substance: CLONAZEPAM
     Indication: Post-traumatic stress disorder
     Dates: start: 202010
  4. KLONOPIN [Concomitant]
     Active Substance: CLONAZEPAM
     Indication: Bipolar disorder
  5. SYNTHROID [Concomitant]
     Active Substance: LEVOTHYROXINE SODIUM
     Dates: start: 201601
  6. LAMICTAL [Concomitant]
     Active Substance: LAMOTRIGINE
     Indication: Post-traumatic stress disorder
     Dosage: UNK
     Dates: start: 201901
  7. LAMICTAL [Concomitant]
     Active Substance: LAMOTRIGINE
     Indication: Depression
  8. LAMICTAL [Concomitant]
     Active Substance: LAMOTRIGINE
     Indication: Bipolar disorder

REACTIONS (9)
  - Bone pain [Unknown]
  - Myalgia [Unknown]
  - Dysmenorrhoea [Unknown]
  - Asthenia [Unknown]
  - Swelling [Unknown]
  - Gastrointestinal disorder [Unknown]
  - Urine analysis abnormal [Unknown]
  - Blood creatinine abnormal [Unknown]
  - Injury associated with device [Unknown]
